FAERS Safety Report 15650603 (Version 3)
Quarter: 2019Q2

REPORT INFORMATION
  Report Type: Report from Study
  Country: JP (occurrence: JP)
  Receive Date: 20181123
  Receipt Date: 20190418
  Transmission Date: 20190711
  Serious: Yes (Hospitalization, Other)
  Sender: FDA-Public Use
  Company Number: JP-AMGEN-JPNCT2017055129

PATIENT
  Age: 78 Year
  Sex: Male
  Weight: 62.7 kg

DRUGS (58)
  1. PANITUMUMAB [Suspect]
     Active Substance: PANITUMUMAB
     Dosage: 4.8 MILLIGRAM/KILOGRAM, Q2WK
     Route: 041
     Dates: start: 20180618, end: 20180702
  2. PANITUMUMAB [Suspect]
     Active Substance: PANITUMUMAB
     Dosage: 4.8 MILLIGRAM/KILOGRAM, Q2WK
     Route: 041
     Dates: start: 20181015, end: 20181015
  3. 5-FU [Concomitant]
     Active Substance: FLUOROURACIL
     Dosage: 2000 MILLIGRAM/SQ. METER, Q2WK
     Route: 041
     Dates: start: 20180219, end: 20180305
  4. 5-FU [Concomitant]
     Active Substance: FLUOROURACIL
     Dosage: 200 MILLIGRAM/SQ. METER, Q2WK
     Route: 040
     Dates: start: 20181015, end: 20181015
  5. PANITUMUMAB [Suspect]
     Active Substance: PANITUMUMAB
     Dosage: 4.8 MILLIGRAM/KILOGRAM, Q2WK
     Route: 041
     Dates: start: 20180730, end: 20180730
  6. CALCIUM LEVOFOLINATE [Concomitant]
     Active Substance: LEVOLEUCOVORIN CALCIUM
     Dosage: 336 MILLIGRAM, Q2WEEKS
     Route: 041
     Dates: start: 20170220, end: 20170703
  7. CALCIUM LEVOFOLINATE [Concomitant]
     Active Substance: LEVOLEUCOVORIN CALCIUM
     Dosage: 336 MILLIGRAM, Q2WEEKS
     Route: 041
     Dates: start: 20180604, end: 20180702
  8. CALCIUM LEVOFOLINATE [Concomitant]
     Active Substance: LEVOLEUCOVORIN CALCIUM
     Dosage: 336 MILLIGRAM, Q2WEEKS
     Route: 041
     Dates: start: 20180730, end: 20180730
  9. 5-FU [Concomitant]
     Active Substance: FLUOROURACIL
     Indication: COLON CANCER
     Dosage: 650 MILLIGRAM, Q2WK
     Route: 040
     Dates: start: 20170112, end: 20170126
  10. 5-FU [Concomitant]
     Active Substance: FLUOROURACIL
     Dosage: 2000 MILLIGRAM/SQ. METER, Q2WK
     Route: 041
     Dates: start: 20180402, end: 20180507
  11. 5-FU [Concomitant]
     Active Substance: FLUOROURACIL
     Dosage: 2000 MILLIGRAM/SQ. METER, Q2WK
     Route: 041
     Dates: start: 20180604, end: 20180702
  12. PANITUMUMAB [Suspect]
     Active Substance: PANITUMUMAB
     Dosage: 370 MILLIGRAM, Q2WK
     Route: 041
     Dates: start: 20171204, end: 20171225
  13. OXALIPLATIN. [Concomitant]
     Active Substance: OXALIPLATIN
     Dosage: 50 MILLIGRAM/SQ. METER, Q2WEEKS
     Route: 041
     Dates: start: 20170925, end: 20170925
  14. CALCIUM LEVOFOLINATE [Concomitant]
     Active Substance: LEVOLEUCOVORIN CALCIUM
     Indication: COLON CANCER
     Dosage: 336 MILLIGRAM, Q2WK
     Route: 041
     Dates: start: 20170112, end: 20170126
  15. CALCIUM LEVOFOLINATE [Concomitant]
     Active Substance: LEVOLEUCOVORIN CALCIUM
     Dosage: 336 MILLIGRAM, Q2WEEKS
     Route: 041
     Dates: start: 20181015, end: 20181015
  16. 5-FU [Concomitant]
     Active Substance: FLUOROURACIL
     Dosage: 200 MILLIGRAM/SQ. METER, Q2WK
     Route: 040
     Dates: start: 20170220, end: 20170703
  17. 5-FU [Concomitant]
     Active Substance: FLUOROURACIL
     Dosage: 200 MILLIGRAM/SQ. METER, Q2WK
     Route: 040
     Dates: start: 20170731, end: 20170821
  18. 5-FU [Concomitant]
     Active Substance: FLUOROURACIL
     Dosage: 2000 MILLIGRAM/SQ. METER, Q2WK
     Route: 041
     Dates: start: 20180730, end: 20180730
  19. PANITUMUMAB [Suspect]
     Active Substance: PANITUMUMAB
     Dosage: 370 MILLIGRAM, Q2WK
     Route: 041
     Dates: start: 20170220, end: 20170703
  20. PANITUMUMAB [Suspect]
     Active Substance: PANITUMUMAB
     Dosage: 370 MILLIGRAM, Q2WK
     Route: 041
     Dates: start: 20170731, end: 20170821
  21. PANITUMUMAB [Suspect]
     Active Substance: PANITUMUMAB
     Dosage: 370 MILLIGRAM, Q2WK
     Route: 041
     Dates: start: 20180219, end: 20180305
  22. CALCIUM LEVOFOLINATE [Concomitant]
     Active Substance: LEVOLEUCOVORIN CALCIUM
     Dosage: 336 MILLIGRAM, Q2WEEKS
     Route: 041
     Dates: start: 20170731, end: 20170821
  23. CALCIUM LEVOFOLINATE [Concomitant]
     Active Substance: LEVOLEUCOVORIN CALCIUM
     Dosage: 336 MILLIGRAM, Q2WEEKS
     Route: 041
     Dates: start: 20180122, end: 20180122
  24. 5-FU [Concomitant]
     Active Substance: FLUOROURACIL
     Dosage: 1254 MILLIGRAM/SQ. METER, Q2WK
     Route: 041
     Dates: start: 20170220, end: 20170306
  25. 5-FU [Concomitant]
     Active Substance: FLUOROURACIL
     Dosage: 2000 MILLIGRAM/SQ. METER, Q2WK
     Route: 041
     Dates: start: 20171204, end: 20171225
  26. 5-FU [Concomitant]
     Active Substance: FLUOROURACIL
     Dosage: 200 MILLIGRAM/SQ. METER, Q2WK
     Route: 040
     Dates: start: 20180122, end: 20180122
  27. 5-FU [Concomitant]
     Active Substance: FLUOROURACIL
     Dosage: 2000 MILLIGRAM/SQ. METER, Q2WK
     Route: 041
     Dates: start: 20180122, end: 20180122
  28. 5-FU [Concomitant]
     Active Substance: FLUOROURACIL
     Dosage: 200 MILLIGRAM/SQ. METER, Q2WK
     Route: 040
     Dates: start: 20180604, end: 20180702
  29. ANTEBATE [Concomitant]
     Active Substance: BETAMETHASONE DIPROPIONATE
     Indication: RASH
     Dosage: UNK
     Route: 062
  30. ANTEBATE [Concomitant]
     Active Substance: BETAMETHASONE DIPROPIONATE
     Dosage: UNK
     Route: 062
  31. CALCIUM LEVOFOLINATE [Concomitant]
     Active Substance: LEVOLEUCOVORIN CALCIUM
     Dosage: 336 MILLIGRAM, Q2WEEKS
     Route: 041
     Dates: start: 20180903, end: 20180903
  32. 5-FU [Concomitant]
     Active Substance: FLUOROURACIL
     Dosage: 200 MILLIGRAM/SQ. METER, Q2WK
     Route: 040
     Dates: start: 20170925, end: 20171106
  33. 5-FU [Concomitant]
     Active Substance: FLUOROURACIL
     Dosage: 200 MILLIGRAM/SQ. METER, Q2WK
     Route: 040
     Dates: start: 20180219, end: 20180305
  34. 5-FU [Concomitant]
     Active Substance: FLUOROURACIL
     Dosage: 2000 MILLIGRAM/SQ. METER, Q2WK
     Route: 041
     Dates: start: 20180903, end: 20180903
  35. 5-FU [Concomitant]
     Active Substance: FLUOROURACIL
     Dosage: 2000 MILLIGRAM/SQ. METER, Q2WK
     Route: 041
     Dates: start: 20181015, end: 20181015
  36. 5-FU [Concomitant]
     Active Substance: FLUOROURACIL
     Dosage: UNK
     Route: 040
     Dates: start: 20181119
  37. PANITUMUMAB [Suspect]
     Active Substance: PANITUMUMAB
     Dosage: UNK
     Route: 041
     Dates: start: 20181119
  38. CALCIUM LEVOFOLINATE [Concomitant]
     Active Substance: LEVOLEUCOVORIN CALCIUM
     Dosage: 336 MILLIGRAM, Q2WEEKS
     Route: 041
     Dates: start: 20170925, end: 20171106
  39. CALCIUM LEVOFOLINATE [Concomitant]
     Active Substance: LEVOLEUCOVORIN CALCIUM
     Dosage: 336 MILLIGRAM, Q2WEEKS
     Route: 041
     Dates: start: 20180402, end: 20180507
  40. 5-FU [Concomitant]
     Active Substance: FLUOROURACIL
     Dosage: 200 MILLIGRAM/SQ. METER, Q2WK
     Route: 041
     Dates: start: 20170328, end: 20170703
  41. HIRUDOID [Concomitant]
     Active Substance: GLYCOSAMINOGLYCANS
     Indication: RASH
     Dosage: UNK
     Route: 062
  42. PANITUMUMAB [Suspect]
     Active Substance: PANITUMUMAB
     Dosage: 370 MILLIGRAM, Q2WK
     Route: 041
     Dates: start: 20170925, end: 20171106
  43. PANITUMUMAB [Suspect]
     Active Substance: PANITUMUMAB
     Dosage: 370 MILLIGRAM, Q2WK
     Route: 041
     Dates: start: 20180402, end: 20180402
  44. PANITUMUMAB [Suspect]
     Active Substance: PANITUMUMAB
     Dosage: 370 MILLIGRAM, Q2WK
     Route: 041
     Dates: start: 20180507, end: 20180507
  45. PANITUMUMAB [Suspect]
     Active Substance: PANITUMUMAB
     Dosage: 4.8 MILLIGRAM/KILOGRAM, Q2WK
     Route: 041
     Dates: start: 20180903, end: 20180903
  46. OXALIPLATIN. [Concomitant]
     Active Substance: OXALIPLATIN
     Dosage: 65 MILLIGRAM/SQ. METER, Q2WK
     Route: 041
     Dates: start: 20170220, end: 20170703
  47. CALCIUM LEVOFOLINATE [Concomitant]
     Active Substance: LEVOLEUCOVORIN CALCIUM
     Dosage: 336 MILLIGRAM, Q2WEEKS
     Route: 041
     Dates: start: 20180219, end: 20180305
  48. 5-FU [Concomitant]
     Active Substance: FLUOROURACIL
     Dosage: 4000 MILLIGRAM, Q2WK
     Route: 041
     Dates: start: 20170112, end: 20170126
  49. 5-FU [Concomitant]
     Active Substance: FLUOROURACIL
     Dosage: 200 MILLIGRAM/SQ. METER, Q2WK
     Route: 040
     Dates: start: 20171204, end: 20171225
  50. 5-FU [Concomitant]
     Active Substance: FLUOROURACIL
     Dosage: 200 MILLIGRAM/SQ. METER, Q2WK
     Route: 040
     Dates: start: 20180402, end: 20180507
  51. 5-FU [Concomitant]
     Active Substance: FLUOROURACIL
     Dosage: 200 MILLIGRAM/SQ. METER, Q2WK
     Route: 040
     Dates: start: 20180730, end: 20180730
  52. PANITUMUMAB [Suspect]
     Active Substance: PANITUMUMAB
     Indication: COLON CANCER
     Dosage: 370 MILLIGRAM, Q2WK
     Route: 041
     Dates: start: 20170112, end: 20170126
  53. PANITUMUMAB [Suspect]
     Active Substance: PANITUMUMAB
     Dosage: 370 MILLIGRAM, Q2WK
     Route: 041
     Dates: start: 20180122, end: 20180122
  54. OXALIPLATIN. [Concomitant]
     Active Substance: OXALIPLATIN
     Indication: COLON CANCER
     Dosage: 140 MILLIGRAM, Q2WK
     Route: 041
     Dates: start: 20170112, end: 20170126
  55. OXALIPLATIN. [Concomitant]
     Active Substance: OXALIPLATIN
     Dosage: 65 MILLIGRAM/SQ. METER, Q2WEEKS
     Route: 041
     Dates: start: 20170731, end: 20170821
  56. CALCIUM LEVOFOLINATE [Concomitant]
     Active Substance: LEVOLEUCOVORIN CALCIUM
     Dosage: 336 MILLIGRAM, Q2WEEKS
     Route: 041
     Dates: start: 20171204, end: 20171225
  57. 5-FU [Concomitant]
     Active Substance: FLUOROURACIL
     Dosage: 2000 MILLIGRAM/SQ. METER, Q2WK
     Route: 041
     Dates: start: 20170731, end: 20170821
  58. 5-FU [Concomitant]
     Active Substance: FLUOROURACIL
     Dosage: 200 MILLIGRAM/SQ. METER, Q2WK
     Route: 040
     Dates: start: 20180903, end: 20180903

REACTIONS (10)
  - Stomatitis [Recovered/Resolved]
  - Hypomagnesaemia [Recovered/Resolved]
  - Dermatitis acneiform [Recovered/Resolved]
  - Dermatitis acneiform [Recovered/Resolved]
  - Fatigue [Recovered/Resolved]
  - Bile duct stone [Recovering/Resolving]
  - Peripheral sensory neuropathy [Recovered/Resolved]
  - Fatigue [Recovered/Resolved]
  - Diarrhoea [Recovered/Resolved]
  - Nausea [Recovered/Resolved]

NARRATIVE: CASE EVENT DATE: 20180604
